FAERS Safety Report 16647692 (Version 1)
Quarter: 2019Q3

REPORT INFORMATION
  Report Type: Spontaneous
  Country: FR (occurrence: FR)
  Receive Date: 20190730
  Receipt Date: 20190730
  Transmission Date: 20191004
  Serious: Yes (Life-Threatening)
  Sender: FDA-Public Use
  Company Number: FR-PFIZER INC-2019325515

PATIENT
  Age: 50 Year
  Sex: Female
  Weight: 65.3 kg

DRUGS (3)
  1. PARACETAMOL [Suspect]
     Active Substance: ACETAMINOPHEN
     Dosage: 3.25 G, UNK
     Route: 048
     Dates: start: 20190619, end: 20190619
  2. ALPRAZOLAM. [Suspect]
     Active Substance: ALPRAZOLAM
     Dosage: 23 DF, UNK
     Route: 048
     Dates: start: 20190619, end: 20190619
  3. TRAMADOL. [Suspect]
     Active Substance: TRAMADOL
     Dosage: UNK
     Route: 048
     Dates: start: 20190619, end: 20190619

REACTIONS (4)
  - Toxicity to various agents [Recovered/Resolved]
  - Cyanosis [Recovered/Resolved]
  - Coma [Recovered/Resolved]
  - Overdose [Recovered/Resolved]

NARRATIVE: CASE EVENT DATE: 20190619
